FAERS Safety Report 5891013-1 (Version None)
Quarter: 2008Q3

REPORT INFORMATION
  Report Type: 
  Country: None (occurrence: None)
  Receive Date: 20080922
  Receipt Date: 20080917
  Transmission Date: 20090109
  Serious: Yes (Life-Threatening)
  Sender: FDA-Public Use
  Company Number: B0537467A

PATIENT
  Age: 31 Year
  Sex: Female

DRUGS (1)
  1. AUGMENTIN '125' [Suspect]
     Dosage: 625MG SINGLE DOSE
     Route: 065
     Dates: start: 20080910, end: 20080910

REACTIONS (3)
  - HYPERTENSION [None]
  - NASAL OEDEMA [None]
  - PHARYNGEAL OEDEMA [None]
